FAERS Safety Report 8335581-9 (Version None)
Quarter: 2012Q2

REPORT INFORMATION
  Report Type: 
  Country: None (occurrence: None)
  Receive Date: 20120504
  Receipt Date: 20120423
  Transmission Date: 20120825
  Serious: Yes (Other)
  Sender: FDA-Public Use
  Company Number: BR-BRISTOL-MYERS SQUIBB COMPANY-16540882

PATIENT
  Age: 8 Year
  Sex: Male

DRUGS (4)
  1. STREPTOMYCIN SULFATE [Suspect]
     Indication: TUBERCULOSIS
  2. RIFAMPICIN [Suspect]
     Indication: TUBERCULOSIS
  3. PYRAZINAMIDE [Suspect]
     Indication: TUBERCULOSIS
  4. ETHAMBUTOL HYDROCHLORIDE [Suspect]
     Indication: TUBERCULOSIS

REACTIONS (1)
  - TUBERCULOMA OF CENTRAL NERVOUS SYSTEM [None]
